FAERS Safety Report 11520834 (Version 2)
Quarter: 2015Q4

REPORT INFORMATION
  Report Type: Report from Study
  Country: US (occurrence: US)
  Receive Date: 20150918
  Receipt Date: 20151228
  Transmission Date: 20160304
  Serious: No
  Sender: FDA-Public Use
  Company Number: PHEH2015US017643

PATIENT
  Sex: Female
  Weight: 79.37 kg

DRUGS (1)
  1. GILENYA [Suspect]
     Active Substance: FINGOLIMOD HYDROCHLORIDE
     Indication: MULTIPLE SCLEROSIS
     Dosage: 0.5 MG, QD
     Route: 048
     Dates: start: 20150514

REACTIONS (12)
  - Condition aggravated [Unknown]
  - Cerebral disorder [Unknown]
  - Weight increased [Unknown]
  - Fatigue [Unknown]
  - Memory impairment [Recovering/Resolving]
  - Hypersomnia [Unknown]
  - Confusional state [Unknown]
  - Dysgraphia [Unknown]
  - Nervousness [Unknown]
  - Arthritis [Unknown]
  - Back pain [Unknown]
  - Insomnia [Unknown]
